FAERS Safety Report 8024881-8 (Version None)
Quarter: 2012Q1

REPORT INFORMATION
  Report Type: 
  Country: None (occurrence: None)
  Receive Date: 20120105
  Receipt Date: 20120103
  Transmission Date: 20120608
  Serious: Yes (Hospitalization)
  Sender: FDA-Public Use
  Company Number: US-B.I. PHARMACEUTICALS,INC./RIDGEFIELD-2011-BP-27255BP

PATIENT
  Age: 68 Year
  Sex: Female
  Weight: 65 kg

DRUGS (15)
  1. CARDIZEM CD [Concomitant]
     Dosage: 120 MG
     Dates: start: 20040219
  2. KLOR-CON M20 [Concomitant]
     Dosage: 40 MEQ
     Route: 048
     Dates: start: 20110321
  3. METAMUCIL-2 [Concomitant]
     Dates: start: 20110126
  4. NEURONTIN [Concomitant]
     Dosage: 400 MG
     Route: 048
     Dates: start: 20111102
  5. PLAVIX [Concomitant]
     Dosage: 75 MG
     Dates: start: 20110819
  6. LEVSIN/SL [Concomitant]
     Indication: RECTAL SPASM
     Dosage: 0.125 MG
     Route: 048
     Dates: start: 20080716
  7. PROTONIX [Concomitant]
     Dosage: 40 MG
     Route: 048
     Dates: start: 20090325
  8. TOPAMAX [Concomitant]
     Dosage: 400 MG
     Dates: start: 20110126
  9. LIPITOR [Concomitant]
     Dosage: 10 MG
     Route: 048
     Dates: start: 20090225
  10. TRAZODONE HCL [Concomitant]
     Dosage: 50 MG
     Route: 048
     Dates: start: 20090225
  11. XANAX [Concomitant]
     Dosage: 0.75 MG
     Route: 048
  12. ULTRACET [Concomitant]
     Route: 048
     Dates: start: 20111102
  13. PRADAXA [Suspect]
     Indication: ATRIAL FIBRILLATION
     Dosage: 300 MG
     Dates: start: 20110101, end: 20110301
  14. LASIX [Concomitant]
     Dosage: 40 MG
     Route: 048
     Dates: start: 20020411
  15. MIRALAX [Concomitant]
     Dates: start: 20110819

REACTIONS (2)
  - DIARRHOEA [None]
  - PERICARDIAL HAEMORRHAGE [None]
